FAERS Safety Report 9222958 (Version 1)
Quarter: 2013Q2

REPORT INFORMATION
  Report Type: Spontaneous
  Country: US (occurrence: US)
  Receive Date: 20130410
  Receipt Date: 20130410
  Transmission Date: 20140414
  Serious: Yes (Death)
  Sender: FDA-Public Use
  Company Number: US-ROCHE-1211365

PATIENT
  Age: 35 Year
  Sex: Male

DRUGS (14)
  1. NAPROXEN [Suspect]
     Indication: PRODUCT USED FOR UNKNOWN INDICATION
     Route: 065
  2. BENADRYL [Suspect]
     Indication: PRODUCT USED FOR UNKNOWN INDICATION
     Route: 042
  3. AMITRIPTYLINE [Concomitant]
     Route: 065
  4. GLIPIZIDE [Concomitant]
     Route: 065
  5. ZOFRAN [Concomitant]
     Route: 065
  6. DEMEROL [Concomitant]
     Route: 065
  7. CARVEDILOL [Concomitant]
     Indication: HYPERTENSION
     Route: 065
  8. HCTZ [Concomitant]
     Route: 065
  9. GABAPENTIN [Concomitant]
     Route: 065
  10. METFORMIN [Concomitant]
     Indication: DIABETES MELLITUS
     Route: 065
  11. BACLOFEN [Concomitant]
     Route: 065
  12. CIALIS [Concomitant]
     Route: 065
  13. HYDROCODONE BITARTRATE [Concomitant]
     Route: 065
  14. METHADONE [Concomitant]
     Route: 065

REACTIONS (2)
  - Respiratory failure [Fatal]
  - Accidental overdose [Fatal]
